FAERS Safety Report 9337327 (Version 1)
Quarter: 2013Q2

REPORT INFORMATION
  Report Type: Spontaneous
  Country: BR (occurrence: BR)
  Receive Date: 20130607
  Receipt Date: 20130607
  Transmission Date: 20140414
  Serious: Yes (Disabling)
  Sender: FDA-Public Use
  Company Number: BR-B.I. PHARMACEUTICALS,INC./RIDGEFIELD-2013-BR-00694BR

PATIENT
  Sex: Female

DRUGS (4)
  1. MOVATEC [Suspect]
     Indication: RHEUMATOID ARTHRITIS
     Dates: start: 2000
  2. AZULFIN [Concomitant]
     Indication: RHEUMATOID ARTHRITIS
     Dosage: 1000 MG
     Dates: start: 2000
  3. CHLOROQUINE DISULFATE [Concomitant]
     Indication: RHEUMATOID ARTHRITIS
     Dates: start: 2000
  4. METOTREXATE [Concomitant]
     Indication: RHEUMATOID ARTHRITIS
     Dates: start: 2000

REACTIONS (2)
  - Rheumatoid arthritis [Unknown]
  - Arthralgia [Unknown]
